FAERS Safety Report 6526427-X (Version None)
Quarter: 2009Q4

REPORT INFORMATION
  Report Type: 
  Country: None (occurrence: None)
  Receive Date: 20091229
  Receipt Date: 20091215
  Transmission Date: 20100525
  Serious: Yes (Other)
  Sender: FDA-Public Use
  Company Number: PAR_03293_2009

PATIENT
  Age: 20 Year
  Sex: Female

DRUGS (1)
  1. IBUPROFEN TABLETS [Suspect]
     Indication: DRUG USE FOR UNKNOWN INDICATION
     Dosage: DF

REACTIONS (9)
  - ANAPHYLACTIC REACTION [None]
  - CARDIAC DISORDER [None]
  - DYSPNOEA [None]
  - ELECTROCARDIOGRAM T WAVE INVERSION [None]
  - HEART RATE INCREASED [None]
  - HYPOKINESIA [None]
  - RASH MACULO-PAPULAR [None]
  - RESPIRATORY RATE INCREASED [None]
  - TROPONIN I INCREASED [None]
